FAERS Safety Report 25929292 (Version 2)
Quarter: 2025Q4

REPORT INFORMATION
  Report Type: Spontaneous
  Country: EU (occurrence: EU)
  Receive Date: 20251016
  Receipt Date: 20251105
  Transmission Date: 20260117
  Serious: Yes (Hospitalization)
  Sender: TEVA
  Company Number: EU-TEVA-VS-3380385

PATIENT
  Sex: Male

DRUGS (3)
  1. CYCLOSPORINE [Suspect]
     Active Substance: CYCLOSPORINE
     Indication: Immunosuppressant drug therapy
     Dosage: RECEIVED TWO TIMES
     Route: 065
  2. MYCOPHENOLATE MOFETIL [Suspect]
     Active Substance: MYCOPHENOLATE MOFETIL
     Indication: Immunosuppressant drug therapy
     Dosage: RECEIVED TWO TIMES
     Route: 065
  3. CIPROFLOXACIN [Suspect]
     Active Substance: CIPROFLOXACIN
     Indication: Antibiotic prophylaxis
     Dosage: RECEIVED ONE TIME
     Route: 065

REACTIONS (6)
  - Renal impairment [Recovered/Resolved]
  - Pathogen resistance [Unknown]
  - Cardiac murmur [Unknown]
  - Drug ineffective [Unknown]
  - Drug level increased [Recovered/Resolved]
  - Escherichia infection [Unknown]
